FAERS Safety Report 9424500 (Version 1)
Quarter: 2013Q3

REPORT INFORMATION
  Report Type: Spontaneous
  Country: IT (occurrence: None)
  Receive Date: 20130725
  Receipt Date: 20130725
  Transmission Date: 20140515
  Serious: Yes (Other)
  Sender: FDA-Public Use
  Company Number: TIF2013A00121

PATIENT
  Age: 72 Year
  Sex: Male

DRUGS (7)
  1. ACTOS [Suspect]
     Indication: TYPE 2 DIABETES MELLITUS
     Route: 048
     Dates: start: 20120801, end: 20130711
  2. COUMADIN (WARFARIN SODIUM) [Concomitant]
  3. LASIX (FUROSEMIDE) [Concomitant]
  4. LUCEN (ESOMEPRAZOLE MAGNESIUM) [Concomitant]
  5. ALDACTONE (SPIRONOLACTONE) [Concomitant]
  6. ISOPTIN (VERAPAMIL HYDROCHLORIDE) [Concomitant]
  7. ADENURIC [Concomitant]

REACTIONS (1)
  - Normochromic normocytic anaemia [None]
